FAERS Safety Report 8279751-7 (Version None)
Quarter: 2012Q2

REPORT INFORMATION
  Report Type: 
  Country: None (occurrence: None)
  Receive Date: 20120412
  Receipt Date: 20111115
  Transmission Date: 20120825
  Serious: No
  Sender: FDA-Public Use
  Company Number: US-ASTRAZENECA-2011SE69769

PATIENT
  Age: 30 Year
  Sex: Female

DRUGS (8)
  1. OMEPRAZOLE [Suspect]
     Route: 048
  2. OVCON-35 [Concomitant]
  3. CLOBETASOL PROPIONATE [Concomitant]
  4. PROMETHAZINE DM [Concomitant]
  5. DILAUDID [Concomitant]
  6. METAPROLOL TARTRATE [Concomitant]
  7. NEXIUM [Suspect]
     Route: 048
  8. SOMA [Concomitant]

REACTIONS (4)
  - BACK PAIN [None]
  - GASTROOESOPHAGEAL REFLUX DISEASE [None]
  - INSOMNIA [None]
  - DRUG INEFFECTIVE [None]
